FAERS Safety Report 7607112-X (Version None)
Quarter: 2011Q3

REPORT INFORMATION
  Report Type: 
  Country: None (occurrence: None)
  Receive Date: 20110712
  Receipt Date: 20110712
  Transmission Date: 20111222
  Serious: No
  Sender: FDA-Public Use
  Company Number: None

PATIENT
  Age: 68 Year
  Sex: Male
  Weight: 70.4 kg

DRUGS (1)
  1. CABAZITAXEL [Suspect]
     Indication: PROSTATE CANCER
     Dosage: 46 MG ONCE IV
     Route: 042
     Dates: start: 20110426, end: 20110607

REACTIONS (2)
  - DISEASE PROGRESSION [None]
  - THROMBOCYTOPENIA [None]
